FAERS Safety Report 19756274 (Version 1)
Quarter: 2021Q3

REPORT INFORMATION
  Report Type: Spontaneous
  Country: US (occurrence: US)
  Receive Date: 20210828
  Receipt Date: 20210828
  Transmission Date: 20211014
  Serious: No
  Sender: FDA-Public Use
  Company Number: US-ASTRAZENECA-2021A675582

PATIENT
  Age: 62 Year
  Sex: Female
  Weight: 66.2 kg

DRUGS (2)
  1. IMFINZI [Suspect]
     Active Substance: DURVALUMAB
     Indication: LUNG NEOPLASM MALIGNANT
     Dosage: MONTHLY
     Route: 042
     Dates: start: 20210729
  2. IMFINZI [Suspect]
     Active Substance: DURVALUMAB
     Indication: LUNG NEOPLASM MALIGNANT
     Dosage: MONTHLY
     Route: 042
     Dates: start: 202102

REACTIONS (4)
  - Fatigue [Not Recovered/Not Resolved]
  - Impaired work ability [Unknown]
  - Sarcoidosis [Unknown]
  - Pneumonia [Recovered/Resolved]

NARRATIVE: CASE EVENT DATE: 2021
